FAERS Safety Report 4878659-4 (Version None)
Quarter: 2006Q1

REPORT INFORMATION
  Report Type: 
  Country: None (occurrence: None)
  Receive Date: 20060110
  Receipt Date: 20040104
  Transmission Date: 20060701
  Serious: Yes (Other)
  Sender: FDA-Public Use
  Company Number: S05-USA-05277-01

PATIENT
  Age: 79 Year
  Sex: Female

DRUGS (20)
  1. NAMENDA [Suspect]
     Indication: AMNESIA
     Dosage: 5 MG QD PO
     Route: 048
     Dates: start: 20051212, end: 20051220
  2. NAMENDA [Suspect]
     Indication: PAIN
     Dosage: 5 MG QD PO
     Route: 048
     Dates: start: 20051212, end: 20051220
  3. FLONASE [Concomitant]
  4. AMBIEN [Concomitant]
  5. PREVACID [Concomitant]
  6. HYOSCYAMINE [Concomitant]
  7. PRAVACHOL [Concomitant]
  8. ACETAMINOPHEN [Concomitant]
  9. COZAAR [Concomitant]
  10. VICODIN [Concomitant]
  11. DIFLUCAN (FLUCONAZOLE) [Concomitant]
  12. LORAZEPAM [Concomitant]
  13. LIDOCAINE [Concomitant]
  14. DITROPAN [Concomitant]
  15. ELMIRON [Concomitant]
  16. URISPAS [Concomitant]
  17. PREMARIN [Concomitant]
  18. NYSTATIN [Concomitant]
  19. METOPROLOL [Concomitant]
  20. DARVOCET (PROPOXYPHENE/ACETAMINOPHEN) [Concomitant]

REACTIONS (2)
  - DEAFNESS UNILATERAL [None]
  - HYPOACUSIS [None]
